FAERS Safety Report 22378235 (Version 1)
Quarter: 2023Q2

REPORT INFORMATION
  Report Type: Spontaneous
  Country: CN (occurrence: CN)
  Receive Date: 20230529
  Receipt Date: 20230529
  Transmission Date: 20230722
  Serious: Yes (Hospitalization, Other)
  Sender: FDA-Public Use
  Company Number: None

PATIENT
  Age: 60 Year
  Sex: Female
  Weight: 61.5 kg

DRUGS (6)
  1. CYCLOPHOSPHAMIDE [Suspect]
     Active Substance: CYCLOPHOSPHAMIDE
     Indication: Breast cancer female
     Dosage: AT 11:00 HOURS, 1 G, QD DILUTED WITH 0.9% OF 500 ML SODIUM CHLORIDE
     Route: 041
     Dates: start: 20230510, end: 20230510
  2. CYCLOPHOSPHAMIDE [Suspect]
     Active Substance: CYCLOPHOSPHAMIDE
     Indication: Breast cancer stage I
  3. SODIUM CHLORIDE [Suspect]
     Active Substance: SODIUM CHLORIDE
     Indication: Medication dilution
     Dosage: AT 11:00 HOURS, 0.9% 500 ML, QD USED TO DILUTE 1 G CYCLOPHOSPHAMIDE
     Route: 041
     Dates: start: 20230510, end: 20230510
  4. DEXTROSE [Suspect]
     Active Substance: DEXTROSE\DEXTROSE MONOHYDRATE
     Indication: Medication dilution
     Dosage: AT 11:00 HOURS, 5% 500 ML, QD USED TO DILUTE 50 MG DOXORUBICIN LIPOSOME
     Route: 041
     Dates: start: 20230510, end: 20230510
  5. DOXORUBICIN HYDROCHLORIDE [Suspect]
     Active Substance: DOXORUBICIN HYDROCHLORIDE
     Indication: Breast cancer female
     Dosage: AT 11:00 HOURS, 50 MG, QD DILUTED WITH 5 % OF 500 ML GLUCOSE SOLUTION
     Route: 041
     Dates: start: 20230510, end: 20230510
  6. DOXORUBICIN HYDROCHLORIDE [Suspect]
     Active Substance: DOXORUBICIN HYDROCHLORIDE
     Indication: Breast cancer stage I

REACTIONS (1)
  - Myelosuppression [Recovering/Resolving]

NARRATIVE: CASE EVENT DATE: 20230519
